FAERS Safety Report 18229212 (Version 1)
Quarter: 2020Q3

REPORT INFORMATION
  Report Type: Spontaneous
  Country: US (occurrence: US)
  Receive Date: 20200903
  Receipt Date: 20200903
  Transmission Date: 20201103
  Serious: Yes (Other)
  Sender: FDA-Public Use
  Company Number: US-LUNDBECK-DKLU3020559

PATIENT
  Age: 70 Year
  Sex: Female

DRUGS (1)
  1. NORTHERA [Suspect]
     Active Substance: DROXIDOPA
     Indication: PRODUCT USED FOR UNKNOWN INDICATION
     Route: 065

REACTIONS (14)
  - Supine hypertension [Unknown]
  - Amnesia [Unknown]
  - Headache [Unknown]
  - Muscle spasms [Unknown]
  - Dry skin [Unknown]
  - Blood pressure increased [Unknown]
  - Blindness unilateral [Unknown]
  - Oesophageal operation [Unknown]
  - Palpitations [Unknown]
  - Pelvic operation [Unknown]
  - Abdominal distension [Unknown]
  - Nausea [Unknown]
  - Stomatitis [Unknown]
  - Fatigue [Unknown]
